FAERS Safety Report 5843726-5 (Version None)
Quarter: 2008Q3

REPORT INFORMATION
  Report Type: 
  Country: None (occurrence: None)
  Receive Date: 20080813
  Receipt Date: 20080508
  Transmission Date: 20090109
  Serious: Yes (Hospitalization)
  Sender: FDA-Public Use
  Company Number: US-BRISTOL-MYERS SQUIBB COMPANY-14183628

PATIENT
  Age: 40 Year
  Sex: Female

DRUGS (1)
  1. IXEMPRA KIT [Suspect]

REACTIONS (1)
  - COLITIS [None]
